FAERS Safety Report 5270283-7 (Version None)
Quarter: 2007Q1

REPORT INFORMATION
  Report Type: 
  Country: None (occurrence: None)
  Receive Date: 20070314
  Receipt Date: 20070227
  Transmission Date: 20070707
  Serious: Yes (Other)
  Sender: FDA-Public Use
  Company Number: 2007JP000902

PATIENT
  Age: 12 Year
  Sex: Female

DRUGS (2)
  1. PROGRAF [Suspect]
     Indication: STEM CELL TRANSPLANT
  2. METHOTREXATE FORMULATION UNKNOWN [Concomitant]

REACTIONS (2)
  - PNEUMONIA [None]
  - RENAL ABSCESS [None]
